FAERS Safety Report 5022084-2 (Version None)
Quarter: 2006Q2

REPORT INFORMATION
  Report Type: 
  Country: None (occurrence: None)
  Receive Date: 20060428
  Receipt Date: 20060303
  Transmission Date: 20061013
  Serious: No
  Sender: FDA-Public Use
  Company Number: COT_0490_2006

PATIENT
  Age: 70 Year
  Sex: Female
  Weight: 83.7 kg

DRUGS (7)
  1. VENTAVIS [Suspect]
     Indication: PULMONARY HYPERTENSION
     Dosage: 2.5 MCG 5 TO 6X/DAY IH
     Route: 055
     Dates: start: 20060209
  2. TRACLEER [Concomitant]
  3. FUROSEMIDE [Concomitant]
  4. DIGOXIN [Concomitant]
  5. TOPROL-XL [Concomitant]
  6. ACIPHEX [Concomitant]
  7. FERROUS SULFATE TAB [Concomitant]

REACTIONS (2)
  - HEART RATE INCREASED [None]
  - HYPOTENSION [None]
